FAERS Safety Report 9054944 (Version 2)
Quarter: 2013Q2

REPORT INFORMATION
  Report Type: Report from Study
  Country: US (occurrence: US)
  Receive Date: 20130208
  Receipt Date: 20130404
  Transmission Date: 20140414
  Serious: Yes (Disabling)
  Sender: FDA-Public Use
  Company Number: US-US-EMD SERONO, INC.-7191433

PATIENT
  Sex: Female

DRUGS (3)
  1. REBIF [Suspect]
     Indication: MULTIPLE SCLEROSIS
     Route: 058
     Dates: start: 20021003, end: 2012
  2. REBIF [Suspect]
     Dates: start: 2012, end: 2012
  3. REBIF [Suspect]
     Dates: start: 2012

REACTIONS (2)
  - Pulmonary hypertension [Not Recovered/Not Resolved]
  - Secondary progressive multiple sclerosis [Unknown]
